FAERS Safety Report 16155273 (Version 1)
Quarter: 2019Q2

REPORT INFORMATION
  Report Type: Spontaneous
  Country: US (occurrence: US)
  Receive Date: 20190403
  Receipt Date: 20190403
  Transmission Date: 20190711
  Serious: No
  Sender: FDA-Public Use
  Company Number: US-JNJFOC-20190237997

PATIENT
  Age: 50 Year
  Sex: Female
  Weight: 112.04 kg

DRUGS (2)
  1. DURAGESIC [Suspect]
     Active Substance: FENTANYL
     Indication: MIGRAINE
     Route: 062
     Dates: start: 20190222
  2. DURAGESIC [Suspect]
     Active Substance: FENTANYL
     Indication: MIGRAINE
     Route: 062
     Dates: start: 2018

REACTIONS (2)
  - Application site reaction [Not Recovered/Not Resolved]
  - Application site pain [Recovered/Resolved]

NARRATIVE: CASE EVENT DATE: 20190222
